FAERS Safety Report 16472821 (Version 1)
Quarter: 2019Q2

REPORT INFORMATION
  Report Type: Report from Study
  Country: HK (occurrence: HK)
  Receive Date: 20190625
  Receipt Date: 20190625
  Transmission Date: 20190711
  Serious: Yes (Other)
  Sender: FDA-Public Use
  Company Number: HK-ROCHE-2073134

PATIENT
  Sex: Female

DRUGS (1)
  1. TRASTUZUMAB EMTANSINE [Suspect]
     Active Substance: ADO-TRASTUZUMAB EMTANSINE
     Indication: HER-2 POSITIVE BREAST CANCER
     Route: 065

REACTIONS (26)
  - Hypokalaemia [Unknown]
  - Sepsis [Unknown]
  - Hypoalbuminaemia [Unknown]
  - Nausea [Unknown]
  - Dyspepsia [Unknown]
  - Peripheral sensory neuropathy [Unknown]
  - Thrombocytopenia [Unknown]
  - Blood alkaline phosphatase increased [Unknown]
  - Stomatitis [Unknown]
  - Decreased appetite [Unknown]
  - Rash [Unknown]
  - Hypoaesthesia [Unknown]
  - Blood creatinine increased [Unknown]
  - Myalgia [Unknown]
  - Hyperbilirubinaemia [Unknown]
  - Leukopenia [Unknown]
  - Fatigue [Unknown]
  - Blood urea increased [Unknown]
  - Hyponatraemia [Unknown]
  - Ejection fraction decreased [Unknown]
  - Diarrhoea [Unknown]
  - Alanine aminotransferase increased [Unknown]
  - Anaemia [Unknown]
  - Neutropenia [Unknown]
  - Aspartate aminotransferase increased [Unknown]
  - Malaise [Unknown]
